FAERS Safety Report 9061336 (Version 1)
Quarter: 2013Q1

REPORT INFORMATION
  Report Type: Spontaneous
  Country: US (occurrence: None)
  Receive Date: 20130118
  Receipt Date: 20130118
  Transmission Date: 20140127
  Serious: Yes (Death, Other)
  Sender: FDA-Public Use
  Company Number: AUR-APL-2013-00267

PATIENT
  Age: 39 Year
  Sex: Female

DRUGS (7)
  1. LISINOPRIL (LISINOPRIL) [Suspect]
  2. HYDROCODONE [Suspect]
     Route: 048
  3. DIAZEPAM (DIAZEPAM) [Suspect]
  4. ACETAMINOPHEN\DIPHENHYDRAMINE [Suspect]
  5. TRAMADOL [Suspect]
  6. PROMETHAZINE [Suspect]
  7. TRAZODONE [Suspect]

REACTIONS (3)
  - Toxicity to various agents [None]
  - Cardiac arrest [None]
  - Respiratory arrest [None]
